FAERS Safety Report 18612711 (Version 1)
Quarter: 2020Q4

REPORT INFORMATION
  Report Type: Spontaneous
  Country: CA (occurrence: CA)
  Receive Date: 20201214
  Receipt Date: 20201214
  Transmission Date: 20210114
  Serious: Yes (Other)
  Sender: FDA-Public Use
  Company Number: CA-PFIZER INC-2020427376

PATIENT
  Age: 70 Year
  Sex: Female

DRUGS (2)
  1. TYLENOL [Concomitant]
     Active Substance: ACETAMINOPHEN
     Dosage: UNK
     Route: 065
  2. METHOTREXATE SODIUM. [Suspect]
     Active Substance: METHOTREXATE SODIUM
     Indication: RHEUMATOID ARTHRITIS
     Dosage: UNK, WEEKLY
     Route: 058
     Dates: start: 2020, end: 2020

REACTIONS (12)
  - Nausea [Unknown]
  - Alopecia [Unknown]
  - Cholelithiasis [Unknown]
  - Oxygen saturation decreased [Unknown]
  - Chills [Recovering/Resolving]
  - Eye irritation [Unknown]
  - Product use issue [Unknown]
  - Pyrexia [Recovering/Resolving]
  - Off label use [Unknown]
  - Hypotension [Unknown]
  - Dizziness [Unknown]
  - Influenza like illness [Unknown]
